FAERS Safety Report 6534161-5 (Version None)
Quarter: 2010Q1

REPORT INFORMATION
  Report Type: 
  Country: None (occurrence: None)
  Receive Date: 20100112
  Receipt Date: 20100105
  Transmission Date: 20100710
  Serious: Yes (Death, Hospitalization)
  Sender: FDA-Public Use
  Company Number: US-ALEXION-A200901039

PATIENT
  Sex: Male

DRUGS (2)
  1. SOLIRIS [Suspect]
     Indication: PAROXYSMAL NOCTURNAL HAEMOGLOBINURIA
     Dosage: UNK
     Route: 042
     Dates: start: 20070614
  2. SOLIRIS [Suspect]
     Dosage: 900 MG, EVERY 2 WEEKS
     Route: 042
     Dates: start: 20071116, end: 20090721

REACTIONS (5)
  - ABDOMINAL PAIN [None]
  - CAECITIS [None]
  - FEBRILE NEUTROPENIA [None]
  - ORAL HERPES [None]
  - SEPSIS [None]
